FAERS Safety Report 20963000 (Version 1)
Quarter: 2022Q2

REPORT INFORMATION
  Report Type: Spontaneous
  Country: None (occurrence: US)
  Receive Date: 20220615
  Receipt Date: 20220615
  Transmission Date: 20220721
  Serious: Yes (Other)
  Sender: FDA-Public Use
  Company Number: US-Performance Health, LLC-2129912

PATIENT
  Age: 49 Year
  Sex: Female

DRUGS (1)
  1. BIOFREEZE [Suspect]
     Active Substance: MENTHOL
     Indication: Analgesic therapy
     Route: 061

REACTIONS (2)
  - Chemical burn [Recovering/Resolving]
  - Application site pain [Recovering/Resolving]
